FAERS Safety Report 18325370 (Version 1)
Quarter: 2020Q3

REPORT INFORMATION
  Report Type: Spontaneous
  Country: JP (occurrence: JP)
  Receive Date: 20200929
  Receipt Date: 20200929
  Transmission Date: 20201103
  Serious: Yes (Hospitalization)
  Sender: FDA-Public Use
  Company Number: JP-BAYER-2020-199885

PATIENT
  Age: 29 Year
  Sex: Female
  Weight: 60 kg

DRUGS (1)
  1. GADOVIST [Suspect]
     Active Substance: GADOBUTROL
     Indication: MAGNETIC RESONANCE IMAGING ABDOMINAL
     Dosage: 6 ML, ONCE
     Route: 042
     Dates: start: 20200911, end: 20200911

REACTIONS (7)
  - Flushing [Recovering/Resolving]
  - Erythema [None]
  - Facial pain [None]
  - Ear pain [None]
  - Face oedema [Recovered/Resolved]
  - Paraesthesia oral [None]
  - Hypoaesthesia oral [None]

NARRATIVE: CASE EVENT DATE: 20200911
